FAERS Safety Report 10915207 (Version 1)
Quarter: 2015Q1

REPORT INFORMATION
  Report Type: Spontaneous
  Country: DE (occurrence: DE)
  Receive Date: 20150316
  Receipt Date: 20150316
  Transmission Date: 20150721
  Serious: Yes (Other)
  Sender: FDA-Public Use
  Company Number: DE-AUROBINDO-AUR-APL-2015-02071

PATIENT
  Age: 33 Year
  Sex: Female

DRUGS (4)
  1. FLUVOXAMINE [Concomitant]
     Active Substance: FLUVOXAMINE
     Indication: ANXIETY DISORDER
     Dosage: 75 MG, DAILY
     Route: 048
     Dates: start: 20140107, end: 20141012
  2. THYRONAJOD [Concomitant]
     Active Substance: LEVOTHYROXINE SODIUM\POTASSIUM IODIDE
     Indication: HYPOTHYROIDISM
     Dosage: 100 ?G, DAILY
     Route: 048
     Dates: start: 20140107, end: 20141012
  3. OLANZAPINE 5MG [Suspect]
     Active Substance: OLANZAPINE
     Indication: ANXIETY DISORDER
     Dosage: 5 MG, DAILY
     Route: 048
     Dates: start: 20140107, end: 20141012
  4. MISOPROSTOL. [Concomitant]
     Active Substance: MISOPROSTOL
     Indication: LABOUR INDUCTION
     Dosage: UNK
     Route: 048
     Dates: start: 20141011, end: 20141011

REACTIONS (4)
  - Premature rupture of membranes [Unknown]
  - Gestational diabetes [Unknown]
  - Maternal exposure during pregnancy [Unknown]
  - Meconium in amniotic fluid [Unknown]
